FAERS Safety Report 21228390 (Version 2)
Quarter: 2022Q3

REPORT INFORMATION
  Report Type: Spontaneous
  Country: CH (occurrence: CH)
  Receive Date: 20220818
  Receipt Date: 20220921
  Transmission Date: 20221027
  Serious: Yes (Other)
  Sender: FDA-Public Use
  Company Number: CH-TEVA-2022-CH-2064397

PATIENT
  Age: 37 Year
  Sex: Male

DRUGS (3)
  1. BUDESONIDE [Suspect]
     Active Substance: BUDESONIDE
     Indication: Asthma
     Route: 055
  2. BUDESONIDE [Suspect]
     Active Substance: BUDESONIDE
     Indication: Product used for unknown indication
     Dosage: APPLIED TO THE FOREARM
     Route: 061
  3. AMCINONIDE [Suspect]
     Active Substance: AMCINONIDE
     Indication: Allergy test
     Route: 065

REACTIONS (2)
  - Dermatitis allergic [Recovered/Resolved]
  - Cross sensitivity reaction [Recovered/Resolved]
